FAERS Safety Report 13621080 (Version 3)
Quarter: 2017Q3

REPORT INFORMATION
  Report Type: Spontaneous
  Country: JP (occurrence: JP)
  Receive Date: 20170607
  Receipt Date: 20170727
  Transmission Date: 20171127
  Serious: Yes (Death, Hospitalization)
  Sender: FDA-Public Use
  Company Number: JP-ASTELLAS-2017JP009526AA

PATIENT
  Age: 76 Year
  Sex: Male
  Weight: 40 kg

DRUGS (10)
  1. HUMIRA [Concomitant]
     Active Substance: ADALIMUMAB
     Indication: BEHCET^S SYNDROME
     Route: 058
     Dates: start: 201605, end: 20161227
  2. REMICADE [Concomitant]
     Active Substance: INFLIXIMAB
     Indication: BEHCET^S SYNDROME
     Route: 042
     Dates: start: 20170117, end: 20170117
  3. PROGRAF [Suspect]
     Active Substance: TACROLIMUS\TACROLIMUS ANHYDROUS
     Dates: start: 20170525, end: 20170531
  4. HUMIRA [Concomitant]
     Active Substance: ADALIMUMAB
     Route: 058
     Dates: start: 20170517, end: 20170517
  5. PREDONINE [Concomitant]
     Active Substance: PREDNISOLONE
     Indication: BEHCET^S SYNDROME
     Route: 042
     Dates: start: 20170517, end: 20170603
  6. CELESTANA [Concomitant]
     Indication: BEHCET^S SYNDROME
     Dosage: 2 TABLETS, TWICE DAILY
     Route: 048
     Dates: start: 20170522, end: 20170603
  7. PROGRAF [Suspect]
     Active Substance: TACROLIMUS\TACROLIMUS ANHYDROUS
     Indication: BEHCET^S SYNDROME
     Dosage: 0.5 MG, ONCE DAILY
     Route: 048
     Dates: start: 20170518, end: 20170524
  8. CYMBALTA [Concomitant]
     Active Substance: DULOXETINE HYDROCHLORIDE
     Indication: BEHCET^S SYNDROME
     Route: 048
     Dates: start: 20170504, end: 20170525
  9. CIMZIA [Suspect]
     Active Substance: CERTOLIZUMAB PEGOL
     Indication: BEHCET^S SYNDROME
     Route: 058
     Dates: start: 20170522, end: 20170522
  10. LIMETHASON                         /00016002/ [Concomitant]
     Indication: PRODUCT USED FOR UNKNOWN INDICATION
     Dosage: UNK UNK, UNKNOWN FREQ.
     Route: 065
     Dates: start: 20170502

REACTIONS (4)
  - Pyrexia [Recovering/Resolving]
  - Renal infarct [Fatal]
  - Off label use [Unknown]
  - Multiple organ dysfunction syndrome [Fatal]

NARRATIVE: CASE EVENT DATE: 20170518
